FAERS Safety Report 10812533 (Version 2)
Quarter: 2015Q2

REPORT INFORMATION
  Report Type: Spontaneous
  Country: IT (occurrence: IT)
  Receive Date: 20150218
  Receipt Date: 20150526
  Transmission Date: 20150821
  Serious: Yes (Other)
  Sender: FDA-Public Use
  Company Number: IT-RANBAXY-2015RR-92069

PATIENT
  Age: 43 Year
  Sex: Female

DRUGS (5)
  1. SPAVERIN [Suspect]
     Active Substance: DROTAVERINE HYDROCHLORIDE
     Indication: PRODUCT USED FOR UNKNOWN INDICATION
     Dosage: 40 MG X 7 TAB (280 MG) TOTAL
     Route: 048
     Dates: start: 20140913, end: 20140913
  2. FURAZOLIDON [Suspect]
     Active Substance: FURAZOLIDONE
     Indication: PRODUCT USED FOR UNKNOWN INDICATION
     Dosage: 100 MG X9 PILLS
     Route: 048
     Dates: start: 20140913, end: 20140913
  3. TACHIPIRINA [Suspect]
     Active Substance: ACETAMINOPHEN
     Indication: PRODUCT USED FOR UNKNOWN INDICATION
     Dosage: 1GX3 PILLS
     Route: 048
     Dates: start: 20140913, end: 20140913
  4. AMOXICILLIN. [Suspect]
     Active Substance: AMOXICILLIN
     Indication: PRODUCT USED FOR UNKNOWN INDICATION
     Dosage: 1 G X 4 PILS
     Route: 048
     Dates: start: 20140913, end: 20140913
  5. SYNFLEX [Suspect]
     Active Substance: NAPROXEN SODIUM
     Indication: PRODUCT USED FOR UNKNOWN INDICATION
     Dosage: 550 MG X 9 PILS (4.95 MG)
     Route: 048
     Dates: start: 20140913, end: 20140913

REACTIONS (3)
  - Intentional self-injury [Recovered/Resolved]
  - Drug abuse [Recovered/Resolved]
  - Abdominal pain upper [Recovered/Resolved]

NARRATIVE: CASE EVENT DATE: 20140913
